FAERS Safety Report 6028151-9 (Version None)
Quarter: 2008Q4

REPORT INFORMATION
  Report Type: 
  Country: None (occurrence: None)
  Receive Date: 20081231
  Receipt Date: 20081231
  Transmission Date: 20090506
  Serious: Yes (Hospitalization)
  Sender: FDA-Public Use
  Company Number: None

PATIENT
  Sex: Female
  Weight: 60 kg

DRUGS (2)
  1. CARBOPLATIN [Suspect]
     Dosage: 552 MG
     Dates: start: 20081218, end: 20081218
  2. TAXOL [Suspect]
     Dosage: 290 MG
     Dates: end: 20081218

REACTIONS (3)
  - ABDOMINAL PAIN [None]
  - BLOOD POTASSIUM DECREASED [None]
  - VOMITING [None]
